FAERS Safety Report 7481234-9 (Version None)
Quarter: 2011Q2

REPORT INFORMATION
  Report Type: 
  Country: None (occurrence: None)
  Receive Date: 20110516
  Receipt Date: 20110503
  Transmission Date: 20111010
  Serious: Yes (Other)
  Sender: FDA-Public Use
  Company Number: PHHY2011US11255

PATIENT
  Sex: Female

DRUGS (1)
  1. FEMARA [Suspect]
     Indication: BONE NEOPLASM MALIGNANT
     Dosage: 2.5 MG PER DAY
     Route: 048
     Dates: start: 20100921, end: 20110119

REACTIONS (1)
  - NEOPLASM MALIGNANT [None]
